FAERS Safety Report 7610507-1 (Version None)
Quarter: 2011Q3

REPORT INFORMATION
  Report Type: 
  Country: None (occurrence: None)
  Receive Date: 20110715
  Receipt Date: 20091220
  Transmission Date: 20111222
  Serious: Yes (Death, Other)
  Sender: FDA-Public Use
  Company Number: US-BAYER-200943416NA

PATIENT
  Age: 78 Year
  Sex: Male
  Weight: 73 kg

DRUGS (17)
  1. ACETYLSALICYLIC ACID SRT [Concomitant]
     Dosage: 81 MG, QD
     Route: 048
  2. VANCOMYCIN [Concomitant]
     Dosage: 1 G, UNK
     Route: 042
     Dates: start: 20070219, end: 20070219
  3. PROTAMINE SULFATE [Concomitant]
     Dosage: 350 MG, UNK
     Route: 042
     Dates: start: 20070219, end: 20070219
  4. FRESH FROZEN PLASMA [Concomitant]
     Dosage: 1 U, UNK
     Route: 042
     Dates: start: 20070219
  5. ZOCOR [Concomitant]
     Dosage: 20 MG, QD
     Route: 048
  6. TRASYLOL [Suspect]
     Dosage: 250,000 KIU/1HR FOR 4 HRS
     Route: 042
     Dates: start: 20070220, end: 20070220
  7. GENTAMYCIN SULFATE [Concomitant]
  8. CONTRAST MEDIA [Concomitant]
     Indication: CATHETERISATION CARDIAC
     Dosage: UNK
     Dates: start: 20070219
  9. TRICOR [Concomitant]
     Dosage: 145 MG, QD
     Route: 048
  10. EPINEPHRINE [Concomitant]
     Dosage: 0.03MCG/KG/MIN
     Route: 042
     Dates: start: 20070219
  11. RED BLOOD CELLS [Concomitant]
     Dosage: 4 U, UNK
     Route: 042
     Dates: start: 20070219
  12. HEPARIN [Concomitant]
     Dosage: 73000
     Route: 042
     Dates: start: 20070219, end: 20070219
  13. VERSED [Concomitant]
     Dosage: 2.5 MG, UNK
     Route: 042
     Dates: start: 20070219, end: 20070219
  14. AMICAR [Concomitant]
     Dosage: 1G/HR
     Route: 042
     Dates: start: 20070219, end: 20070219
  15. TRASYLOL [Suspect]
     Indication: CORONARY ARTERY BYPASS
     Dosage: 10000 KIU, ONCE TEST DOSE
     Route: 042
     Dates: start: 20070220
  16. PLATELETS [Concomitant]
     Dosage: 10 U, UNK
     Route: 042
     Dates: start: 20070219
  17. LOVENOX [Concomitant]
     Dosage: 80 MG, QD
     Route: 058
     Dates: start: 20070219

REACTIONS (12)
  - DEATH [None]
  - UNEVALUABLE EVENT [None]
  - RENAL IMPAIRMENT [None]
  - STRESS [None]
  - RENAL INJURY [None]
  - RENAL FAILURE [None]
  - INJURY [None]
  - ANHEDONIA [None]
  - ANXIETY [None]
  - PAIN [None]
  - FEAR [None]
  - EMOTIONAL DISTRESS [None]
